FAERS Safety Report 7571033-1 (Version None)
Quarter: 2011Q2

REPORT INFORMATION
  Report Type: 
  Country: None (occurrence: None)
  Receive Date: 20110624
  Receipt Date: 20110613
  Transmission Date: 20111010
  Serious: Yes (Other)
  Sender: FDA-Public Use
  Company Number: US-ROCHE-783113

PATIENT

DRUGS (1)
  1. BEVACIZUMAB [Suspect]
     Indication: ENDOMETRIAL CANCER
     Route: 042

REACTIONS (14)
  - GASTRIC HAEMORRHAGE [None]
  - DEEP VEIN THROMBOSIS [None]
  - ANAEMIA [None]
  - HEPATOBILIARY DISEASE [None]
  - OEDEMA PERIPHERAL [None]
  - NERVOUS SYSTEM DISORDER [None]
  - HAEMOPTYSIS [None]
  - RECTAL HAEMORRHAGE [None]
  - HYPERTENSION [None]
  - THROMBOSIS [None]
  - METABOLIC DISORDER [None]
  - PROTEINURIA [None]
  - PAIN [None]
  - MUSCULOSKELETAL DISORDER [None]
